FAERS Safety Report 5485591-4 (Version None)
Quarter: 2007Q4

REPORT INFORMATION
  Report Type: 
  Country: None (occurrence: None)
  Receive Date: 20071011
  Receipt Date: 20071011
  Transmission Date: 20080405
  Serious: Yes (Hospitalization)
  Sender: FDA-Public Use
  Company Number: None

PATIENT
  Age: 20 Year
  Sex: Male

DRUGS (2)
  1. PROCHLORPERAZINE [Suspect]
     Indication: NAUSEA
     Dosage: 10MG QID IV
     Route: 042
     Dates: start: 20071003, end: 20071004
  2. PROCHLORPERAZINE [Suspect]
     Indication: VOMITING
     Dosage: 10MG QID IV
     Route: 042
     Dates: start: 20071003, end: 20071004

REACTIONS (4)
  - DYSTONIA [None]
  - MUSCLE RIGIDITY [None]
  - NUCHAL RIGIDITY [None]
  - TREMOR [None]
